FAERS Safety Report 11857013 (Version 1)
Quarter: 2015Q4

REPORT INFORMATION
  Report Type: Spontaneous
  Country: US (occurrence: US)
  Receive Date: 20151221
  Receipt Date: 20151221
  Transmission Date: 20160305
  Serious: No
  Sender: FDA-Public Use
  Company Number: US-LEO PHARMA-239136

PATIENT
  Sex: Female

DRUGS (1)
  1. PICATO [Suspect]
     Active Substance: INGENOL MEBUTATE
     Indication: BOWEN^S DISEASE
     Dates: start: 20151203, end: 20151205

REACTIONS (4)
  - Fatigue [Unknown]
  - Product use issue [Unknown]
  - Incorrect drug administration duration [Unknown]
  - Drug administered at inappropriate site [Unknown]
